FAERS Safety Report 9999611 (Version 1)
Quarter: 2014Q1

REPORT INFORMATION
  Report Type: Spontaneous
  Country: US (occurrence: None)
  Receive Date: 20140228
  Receipt Date: 20140228
  Transmission Date: 20141002
  Serious: Yes (Other)
  Sender: FDA-Public Use
  Company Number: PHEH2013US011260

PATIENT
  Age: 53 Year
  Sex: Female

DRUGS (3)
  1. TEGRETOL [Suspect]
     Indication: COMPLEX PARTIAL SEIZURES
  2. CLONIDINE (CLONIDINE) [Concomitant]
  3. LISINOPRIL (LISINOPRIL) [Concomitant]

REACTIONS (2)
  - Hepatic failure [None]
  - Complex partial seizures [None]
